FAERS Safety Report 25385441 (Version 1)
Quarter: 2025Q2

REPORT INFORMATION
  Report Type: Spontaneous
  Country: FR (occurrence: FR)
  Receive Date: 20250602
  Receipt Date: 20250602
  Transmission Date: 20250717
  Serious: Yes (Life-Threatening, Hospitalization)
  Sender: TEVA
  Company Number: None

PATIENT
  Age: 76 Year
  Sex: Male
  Weight: 84 kg

DRUGS (5)
  1. CIPROFLOXACIN [Interacting]
     Active Substance: CIPROFLOXACIN
     Indication: Escherichia bacteraemia
     Dosage: CIPROFLOXACIN HYDROCHLORIDE
     Route: 048
     Dates: start: 20250501
  2. ATENOLOL [Concomitant]
     Active Substance: ATENOLOL
     Indication: Hypertensive heart disease
     Route: 048
  3. PANTOPRAZOLE [Concomitant]
     Active Substance: PANTOPRAZOLE
     Indication: Prophylaxis against gastrointestinal ulcer
     Route: 048
  4. TOUJEO [Interacting]
     Active Substance: INSULIN GLARGINE
     Indication: Insulin-requiring type 2 diabetes mellitus
     Dosage: 300 UNITS/ML
     Route: 058
     Dates: end: 20250502
  5. TOUJEO [Interacting]
     Active Substance: INSULIN GLARGINE
     Indication: Insulin-requiring type 2 diabetes mellitus
     Dosage: 300 UNITS/ML
     Route: 058
     Dates: start: 20250502, end: 20250503

REACTIONS (2)
  - Hypoglycaemia [Recovered/Resolved]
  - Drug interaction [Recovered/Resolved]

NARRATIVE: CASE EVENT DATE: 20250501
